FAERS Safety Report 9167003 (Version 1)
Quarter: 2013Q1

REPORT INFORMATION
  Report Type: Spontaneous
  Country: IT (occurrence: IT)
  Receive Date: 20130317
  Receipt Date: 20130317
  Transmission Date: 20140127
  Serious: Yes (Hospitalization)
  Sender: FDA-Public Use
  Company Number: IT-TEVA-391098ISR

PATIENT
  Age: 21 Year
  Sex: Female

DRUGS (4)
  1. LORAZEPAM [Suspect]
     Dosage: 20 MILLIGRAM DAILY;
     Route: 048
     Dates: start: 20130116, end: 20130116
  2. RIVOTRIL [Suspect]
     Dosage: 30 GTT DAILY;
     Route: 048
     Dates: start: 20130116, end: 20130116
  3. TOPAMAX [Concomitant]
  4. SAMYR [Concomitant]

REACTIONS (5)
  - Drug abuse [Unknown]
  - Overdose [Unknown]
  - Nausea [Unknown]
  - Vomiting [Unknown]
  - Abdominal pain upper [Unknown]
